FAERS Safety Report 6049431-7 (Version None)
Quarter: 2009Q1

REPORT INFORMATION
  Report Type: 
  Country: None (occurrence: None)
  Receive Date: 20090123
  Receipt Date: 20090114
  Transmission Date: 20090719
  Serious: Yes (Death, Hospitalization)
  Sender: FDA-Public Use
  Company Number: JP-MERCK-0810USA00674B1

PATIENT
  Weight: 1 kg

DRUGS (7)
  1. PRIMAXIN [Suspect]
     Indication: INFECTION
     Route: 064
  2. FLOMOXEF SODIUM [Concomitant]
     Indication: INFECTION
     Route: 064
  3. PIPERACILLIN SODIUM [Concomitant]
     Indication: INFECTION
     Route: 064
  4. CHLORAMPHENICOL [Concomitant]
     Indication: VAGINAL DOUCHING
     Route: 064
  5. ULINASTATIN [Concomitant]
     Indication: VAGINAL DOUCHING
     Route: 064
  6. RITODRINE HYDROCHLORIDE [Concomitant]
     Indication: UTERINE CONTRACTIONS DURING PREGNANCY
     Route: 064
  7. ERYTHROMYCIN [Concomitant]
     Indication: INFECTION
     Route: 064

REACTIONS (3)
  - CIRCULATORY FAILURE NEONATAL [None]
  - NEONATAL RESPIRATORY FAILURE [None]
  - PREMATURE BABY [None]
